FAERS Safety Report 7311377-1 (Version None)
Quarter: 2011Q1

REPORT INFORMATION
  Report Type: 
  Country: None (occurrence: None)
  Receive Date: 20110216
  Receipt Date: 20110216
  Transmission Date: 20110831
  Serious: Yes (Life-Threatening)
  Sender: FDA-Public Use
  Company Number: None

PATIENT
  Age: 62 Year
  Sex: Male
  Weight: 95 kg

DRUGS (1)
  1. FENTANYL [Suspect]
     Indication: BACK PAIN
     Dosage: 75 MCG/HR 72 HOURS TRANSDERMAL
     Route: 062
     Dates: start: 20110207, end: 20110215

REACTIONS (6)
  - TREMOR [None]
  - DRUG WITHDRAWAL SYNDROME [None]
  - CHILLS [None]
  - HYPERHIDROSIS [None]
  - DRUG INEFFECTIVE [None]
  - PRODUCT SUBSTITUTION ISSUE [None]
